FAERS Safety Report 10263263 (Version 1)
Quarter: 2014Q2

REPORT INFORMATION
  Report Type: Spontaneous
  Country: US (occurrence: US)
  Receive Date: 20140626
  Receipt Date: 20140626
  Transmission Date: 20141212
  Serious: No
  Sender: FDA-Public Use
  Company Number: US-ASTRAZENECA-2014SE23118

PATIENT
  Age: 41 Year
  Sex: Male

DRUGS (5)
  1. BRILINTA [Suspect]
     Route: 048
  2. NORVASC [Concomitant]
     Dosage: UNKNOWN UNK
  3. COZAAR [Concomitant]
     Dosage: UNKNOWN UNK
  4. STATIN [Concomitant]
     Dosage: UNKNOWN UNK
  5. LOPRESSOR [Concomitant]
     Dosage: UNKNOWN UNK

REACTIONS (3)
  - Cough [Recovered/Resolved]
  - Mouth ulceration [Recovered/Resolved]
  - Oropharyngeal pain [Recovered/Resolved]
